FAERS Safety Report 6710657-8 (Version None)
Quarter: 2010Q2

REPORT INFORMATION
  Report Type: 
  Country: None (occurrence: None)
  Receive Date: 20100504
  Receipt Date: 20100504
  Transmission Date: 20101027
  Serious: Yes (Hospitalization)
  Sender: FDA-Public Use
  Company Number: None

PATIENT
  Age: 58 Year
  Sex: Male
  Weight: 132.7 kg

DRUGS (1)
  1. TRIAMTERENE [Suspect]
     Dosage: 100 MG OTHER PO
     Route: 048
     Dates: start: 20060614, end: 20090312

REACTIONS (1)
  - BLOOD CREATININE INCREASED [None]
